FAERS Safety Report 9886422 (Version 3)
Quarter: 2014Q1

REPORT INFORMATION
  Report Type: Spontaneous
  Country: US (occurrence: US)
  Receive Date: 20140210
  Receipt Date: 20140324
  Transmission Date: 20141002
  Serious: No
  Sender: FDA-Public Use
  Company Number: US-PFIZER INC-2013148354

PATIENT
  Age: 89 Year
  Sex: Female
  Weight: 77.1 kg

DRUGS (6)
  1. LYRICA [Suspect]
     Indication: NEURALGIA
     Dosage: 150 MG (TWO 75MG CAPSULES), 1X/DAY
     Route: 048
  2. DILTIAZEM [Concomitant]
     Dosage: UNK
  3. MORPHINE [Concomitant]
     Dosage: UNK
  4. METOPROLOL [Concomitant]
     Indication: CARDIAC DISORDER
     Dosage: 25 MG, DAILY
  5. PRAVASTATIN [Concomitant]
     Indication: BLOOD CHOLESTEROL INCREASED
     Dosage: 40 MG, UNK
  6. WARFARIN [Concomitant]
     Indication: CARDIAC DISORDER
     Dosage: 3 MG, DAILY

REACTIONS (1)
  - Herpes zoster [Recovering/Resolving]
